FAERS Safety Report 6136812-6 (Version None)
Quarter: 2009Q1

REPORT INFORMATION
  Report Type: 
  Country: None (occurrence: None)
  Receive Date: 20090330
  Receipt Date: 20090323
  Transmission Date: 20090719
  Serious: No
  Sender: FDA-Public Use
  Company Number: US-BAYER-200839297NA

PATIENT
  Age: 72 Year
  Sex: Female
  Weight: 68 kg

DRUGS (4)
  1. MAGNEVIST [Suspect]
     Indication: ANGIOGRAM
     Dosage: TOTAL DAILY DOSE: 25 ML
     Route: 042
     Dates: start: 20081122, end: 20081122
  2. THYROID MEDICATION [Concomitant]
  3. CRESTOR [Concomitant]
  4. ATACAND [Concomitant]

REACTIONS (2)
  - COUGH [None]
  - DYSPNOEA [None]
